FAERS Safety Report 18104555 (Version 2)
Quarter: 2020Q4

REPORT INFORMATION
  Report Type: Spontaneous
  Country: US (occurrence: US)
  Receive Date: 20200803
  Receipt Date: 20201126
  Transmission Date: 20210113
  Serious: Yes (Disabling)
  Sender: FDA-Public Use
  Company Number: US-TEVA-2020-US-1808900

PATIENT
  Age: 26 Year
  Sex: Female

DRUGS (6)
  1. TAXOTERE [Suspect]
     Active Substance: DOCETAXEL
     Indication: BREAST CANCER FEMALE
     Dosage: DOSAGE:UNKNOWN; NUMBER OF CYCLES: 06; EVERY THREE WEEKS
     Route: 065
     Dates: start: 20131004, end: 20131004
  2. ADRIAMYCIN [Concomitant]
     Active Substance: DOXORUBICIN HYDROCHLORIDE
     Indication: BREAST CANCER FEMALE
     Dosage: DOSAGE:UNKNOWN; NUMBER OF CYCLES: 06; EVERY THREE WEEKS
     Route: 065
     Dates: start: 20131004, end: 20140115
  3. CYTOXAN [Concomitant]
     Active Substance: CYCLOPHOSPHAMIDE
     Indication: BREAST CANCER FEMALE
     Dosage: DOSAGE:UNKNOWN; NUMBER OF CYCLES: 06; EVERY THREE WEEKS
     Route: 065
     Dates: start: 20131004, end: 20140115
  4. DOCETAXEL. [Suspect]
     Active Substance: DOCETAXEL
     Indication: BREAST CANCER FEMALE
     Dosage: DOSAGE:75 MILLIGRAM; NUMBER OF CYCLES: 06; EVERY THREE WEEKS
     Route: 065
     Dates: start: 20131004, end: 20131004
  5. HYDROCODONE [Concomitant]
     Active Substance: HYDROCODONE
     Dates: start: 200809, end: 200810
  6. HYDROCODONE [Concomitant]
     Active Substance: HYDROCODONE
     Dates: start: 2007, end: 2007

REACTIONS (4)
  - Hair colour changes [Not Recovered/Not Resolved]
  - Hair texture abnormal [Not Recovered/Not Resolved]
  - Alopecia areata [Not Recovered/Not Resolved]
  - Madarosis [Not Recovered/Not Resolved]

NARRATIVE: CASE EVENT DATE: 2014
